FAERS Safety Report 4753431-4 (Version None)
Quarter: 2005Q3

REPORT INFORMATION
  Report Type: 
  Country: None (occurrence: None)
  Receive Date: 20050824
  Receipt Date: 20050815
  Transmission Date: 20060218
  Serious: Yes (Life-Threatening, Hospitalization)
  Sender: FDA-Public Use
  Company Number: 2005-07-1998

PATIENT
  Age: 56 Year
  Sex: Female
  Weight: 37 kg

DRUGS (9)
  1. INTRON A [Suspect]
     Indication: HEPATITIS C
     Dosage: 3 MIU QD INTRAMUSCULAR; 6 MIU QD INTRAMUSCULAR
     Route: 030
     Dates: start: 20050715, end: 20050716
  2. INTRON A [Suspect]
     Indication: HEPATITIS C
     Dosage: 3 MIU QD INTRAMUSCULAR; 6 MIU QD INTRAMUSCULAR
     Route: 030
     Dates: start: 20050718, end: 20050721
  3. INTRON A [Suspect]
     Indication: HEPATITIS C
     Dosage: 3 MIU QD INTRAMUSCULAR; 6 MIU QD INTRAMUSCULAR
     Route: 030
     Dates: start: 20050722, end: 20050723
  4. REBETOL [Suspect]
     Indication: HEPATITIS C
     Dosage: 400 MG ORAL
     Route: 048
     Dates: start: 20050715, end: 20050723
  5. PROGRAF [Concomitant]
  6. PREDONINE TABLETS [Concomitant]
  7. INSULIN [Concomitant]
  8. WARFARIN [Suspect]
     Dosage: 1 MG ORAL
     Route: 048
     Dates: start: 20050531, end: 20050723
  9. BUFFERIN [Suspect]
     Dosage: 81 MG ORAL
     Route: 048
     Dates: start: 20050607, end: 20050607

REACTIONS (6)
  - BLOOD DISORDER [None]
  - BRAIN OEDEMA [None]
  - CEREBRAL HAEMORRHAGE [None]
  - IIIRD NERVE PARALYSIS [None]
  - LOSS OF CONSCIOUSNESS [None]
  - MYDRIASIS [None]
